FAERS Safety Report 11820838 (Version 2)
Quarter: 2015Q4

REPORT INFORMATION
  Report Type: Report from Study
  Country: CA (occurrence: CA)
  Receive Date: 20151210
  Receipt Date: 20151217
  Transmission Date: 20160305
  Serious: Yes (Other)
  Sender: FDA-Public Use
  Company Number: CA-ABBVIE-15K-028-1513882-00

PATIENT
  Age: 57 Year
  Sex: Female
  Weight: 52.21 kg

DRUGS (3)
  1. HUMIRA [Suspect]
     Active Substance: ADALIMUMAB
     Indication: CROHN^S DISEASE
     Route: 058
     Dates: start: 20110316, end: 201502
  2. HUMIRA [Suspect]
     Active Substance: ADALIMUMAB
     Route: 058
     Dates: start: 201502, end: 201506
  3. HUMIRA [Suspect]
     Active Substance: ADALIMUMAB
     Route: 058
     Dates: start: 2015

REACTIONS (7)
  - Lung neoplasm malignant [Recovering/Resolving]
  - Constipation [Not Recovered/Not Resolved]
  - Anal fistula [Unknown]
  - Rectal abscess [Unknown]
  - Abdominal pain [Not Recovered/Not Resolved]
  - Abscess rupture [Unknown]
  - Faecaluria [Unknown]

NARRATIVE: CASE EVENT DATE: 201505
